FAERS Safety Report 21978461 (Version 3)
Quarter: 2023Q1

REPORT INFORMATION
  Report Type: Report from Study
  Country: AR (occurrence: AR)
  Receive Date: 20230210
  Receipt Date: 20230223
  Transmission Date: 20230417
  Serious: Yes (Hospitalization, Other)
  Sender: FDA-Public Use
  Company Number: AR-TAKEDA-2023TUS013767

PATIENT
  Age: 50 Year
  Sex: Male
  Weight: 69 kg

DRUGS (2)
  1. HUMAN IMMUNOGLOBULIN G\HYALURONIDASE RECOMBINANT HUMAN [Suspect]
     Active Substance: HUMAN IMMUNOGLOBULIN G\HYALURONIDASE RECOMBINANT HUMAN
     Indication: Immunodeficiency
     Dosage: 50 GRAM, Q4WEEKS
     Route: 058
     Dates: start: 20230203
  2. HUMAN IMMUNOGLOBULIN G\HYALURONIDASE RECOMBINANT HUMAN [Suspect]
     Active Substance: HUMAN IMMUNOGLOBULIN G\HYALURONIDASE RECOMBINANT HUMAN
     Dosage: 45 GRAM
     Route: 065
     Dates: start: 20230203

REACTIONS (6)
  - Pneumonia [Unknown]
  - Hypertension [Recovered/Resolved]
  - Administration site oedema [Recovering/Resolving]
  - Administration site discomfort [Unknown]
  - Administration site inflammation [Unknown]
  - Administration site pain [Unknown]

NARRATIVE: CASE EVENT DATE: 20230203
